APPROVED DRUG PRODUCT: FLUOXETINE HYDROCHLORIDE
Active Ingredient: FLUOXETINE HYDROCHLORIDE
Strength: EQ 20MG BASE/5ML
Dosage Form/Route: SOLUTION;ORAL
Application: A075525 | Product #001 | TE Code: AA
Applicant: SCIEGEN PHARMACEUTICALS INC
Approved: Jun 27, 2002 | RLD: No | RS: No | Type: RX